FAERS Safety Report 11297775 (Version 1)
Quarter: 2015Q3

REPORT INFORMATION
  Report Type: Spontaneous
  Country: US (occurrence: US)
  Receive Date: 20150722
  Receipt Date: 20150722
  Transmission Date: 20151125
  Serious: No
  Sender: FDA-Public Use
  Company Number: US-ELI_LILLY_AND_COMPANY-US200909002307

PATIENT
  Age: 72 Year
  Sex: Female

DRUGS (1)
  1. HUMATROPE [Suspect]
     Active Substance: SOMATROPIN
     Dosage: 0.06 MG, DAILY (1/D)
     Route: 058
     Dates: start: 2003

REACTIONS (4)
  - Drug dose omission [Unknown]
  - Diabetes mellitus [Unknown]
  - Intentional device misuse [Unknown]
  - Myopia [Unknown]

NARRATIVE: CASE EVENT DATE: 20081201
